FAERS Safety Report 10457475 (Version 1)
Quarter: 2014Q3

REPORT INFORMATION
  Report Type: Spontaneous
  Country: AU (occurrence: AU)
  Receive Date: 20140916
  Receipt Date: 20140916
  Transmission Date: 20150326
  Serious: Yes (Death, Hospitalization, Other)
  Sender: FDA-Public Use
  Company Number: AU-JNJFOC-20140908828

PATIENT

DRUGS (1)
  1. IBUPROFEN. [Suspect]
     Active Substance: IBUPROFEN
     Indication: PATENT DUCTUS ARTERIOSUS
     Route: 065

REACTIONS (5)
  - Off label use [Unknown]
  - Pulmonary haemorrhage [Unknown]
  - Lung disorder [Unknown]
  - Drug ineffective for unapproved indication [Unknown]
  - Death [Fatal]
